FAERS Safety Report 10628754 (Version 1)
Quarter: 2014Q4

REPORT INFORMATION
  Report Type: Spontaneous
  Country: US (occurrence: US)
  Receive Date: 20141205
  Receipt Date: 20141205
  Transmission Date: 20150529
  Serious: No
  Sender: FDA-Public Use
  Company Number: US-BRISTOL-MYERS SQUIBB COMPANY-21268545

PATIENT
  Age: 78 Year
  Sex: Female

DRUGS (9)
  1. ASPIRIN. [Concomitant]
     Active Substance: ASPIRIN
  2. POTASSIUM [Concomitant]
     Active Substance: POTASSIUM
  3. PREGABALIN. [Concomitant]
     Active Substance: PREGABALIN
  4. LYRICA [Concomitant]
     Active Substance: PREGABALIN
  5. SUTENT [Suspect]
     Active Substance: SUNITINIB MALATE
     Indication: RENAL CELL CARCINOMA
     Dosage: FORMULATION-CAPSULE
  6. ACETAMINOPHEN. [Concomitant]
     Active Substance: ACETAMINOPHEN
  7. HYDROCODONE [Concomitant]
     Active Substance: HYDROCODONE
  8. COUMADIN [Suspect]
     Active Substance: WARFARIN SODIUM
     Dosage: FOR 30 DAYS?DOSE REDUCED: 2.5MG
  9. FUROSEMIDE. [Concomitant]
     Active Substance: FUROSEMIDE

REACTIONS (4)
  - Fatigue [Unknown]
  - Pain [Unknown]
  - Abdominal pain upper [Unknown]
  - Anticoagulation drug level below therapeutic [Unknown]
